FAERS Safety Report 8103048-9 (Version None)
Quarter: 2012Q1

REPORT INFORMATION
  Report Type: 
  Country: None (occurrence: None)
  Receive Date: 20120201
  Receipt Date: 20120123
  Transmission Date: 20120608
  Serious: Yes (Hospitalization)
  Sender: FDA-Public Use
  Company Number: IT-TEVA-319684ISR

PATIENT
  Sex: Female

DRUGS (1)
  1. CISPLATIN [Suspect]

REACTIONS (2)
  - RECTAL HAEMORRHAGE [None]
  - ANAEMIA [None]
